FAERS Safety Report 6615372-7 (Version None)
Quarter: 2010Q1

REPORT INFORMATION
  Report Type: 
  Country: None (occurrence: None)
  Receive Date: 20100305
  Receipt Date: 20090918
  Transmission Date: 20100710
  Serious: No
  Sender: FDA-Public Use
  Company Number: A0808072A

PATIENT
  Age: 55 Year
  Sex: Female

DRUGS (5)
  1. REQUIP [Suspect]
     Indication: RESTLESS LEGS SYNDROME
     Dosage: .5MG PER DAY
     Route: 048
     Dates: start: 20090618, end: 20090915
  2. LISINOPRIL [Concomitant]
  3. METFORMIN HYDROCHLORIDE [Concomitant]
  4. LEXAPRO [Concomitant]
  5. ASPIRIN [Concomitant]

REACTIONS (7)
  - CHEST PAIN [None]
  - CONFUSIONAL STATE [None]
  - DECREASED APPETITE [None]
  - FEELING ABNORMAL [None]
  - INSOMNIA [None]
  - MEDICATION ERROR [None]
  - PARAESTHESIA [None]
